FAERS Safety Report 5069033-9 (Version None)
Quarter: 2006Q3

REPORT INFORMATION
  Report Type: 
  Country: None (occurrence: None)
  Receive Date: 20060728
  Receipt Date: 20060719
  Transmission Date: 20061208
  Serious: Yes (Other)
  Sender: FDA-Public Use
  Company Number: 2006-07-1159

PATIENT
  Age: 59 Year
  Sex: Male

DRUGS (4)
  1. TEMODAL [Suspect]
     Indication: METASTASES TO CENTRAL NERVOUS SYSTEM
     Dosage: SEE IMAGE
     Route: 048
     Dates: start: 20060417
  2. TEMODAL [Suspect]
     Indication: METASTASES TO CENTRAL NERVOUS SYSTEM
     Dosage: SEE IMAGE
     Route: 048
     Dates: start: 20060501
  3. TEMODAL [Suspect]
     Indication: METASTASES TO CENTRAL NERVOUS SYSTEM
     Dosage: SEE IMAGE
     Route: 048
     Dates: start: 20060601
  4. BETAPRED [Concomitant]

REACTIONS (4)
  - CONDITION AGGRAVATED [None]
  - DEAFNESS [None]
  - HEARING IMPAIRED [None]
  - TINNITUS [None]
